FAERS Safety Report 8426803-4 (Version None)
Quarter: 2012Q2

REPORT INFORMATION
  Report Type: 
  Country: None (occurrence: None)
  Receive Date: 20120611
  Receipt Date: 20120606
  Transmission Date: 20120825
  Serious: Yes (Life-Threatening, Hospitalization, Other)
  Sender: FDA-Public Use
  Company Number: PHFR2012GB002914

PATIENT
  Sex: Male

DRUGS (7)
  1. CLOZARIL [Suspect]
     Indication: SCHIZOPHRENIA
     Dosage: UNK UKN, UNK
     Route: 048
     Dates: start: 20120501
  2. OLANZAPINE [Concomitant]
     Dosage: 10 MG, DAILY
     Route: 048
     Dates: start: 20120511
  3. LORAZEPAM [Suspect]
     Dosage: 1 MG, PRN
     Route: 048
     Dates: start: 20120430
  4. BENZODIAZEPINES [Concomitant]
     Dosage: UNK UKN, UNK
  5. CLOZARIL [Suspect]
     Dosage: UNK UKN, UNK
     Dates: start: 20120525
  6. NITRAZEPAM [Suspect]
     Route: 048
  7. ZOPICLONE [Suspect]
     Indication: INSOMNIA
     Dosage: 7.5 MG, DAILY
     Route: 048
     Dates: start: 20120430

REACTIONS (7)
  - RESPIRATORY ARREST [None]
  - LOWER RESPIRATORY TRACT INFECTION [None]
  - OVERDOSE [None]
  - C-REACTIVE PROTEIN INCREASED [None]
  - WHITE BLOOD CELL COUNT INCREASED [None]
  - NEUTROPHIL COUNT INCREASED [None]
  - PNEUMONIA ASPIRATION [None]
